FAERS Safety Report 4522734-0 (Version None)
Quarter: 2004Q4

REPORT INFORMATION
  Report Type: 
  Country: None (occurrence: None)
  Receive Date: 20041207
  Receipt Date: 20041203
  Transmission Date: 20050328
  Serious: Yes (Death)
  Sender: FDA-Public Use
  Company Number: TCI2004A04480

PATIENT
  Age: 80 Year
  Sex: Female

DRUGS (2)
  1. ACTOS [Suspect]
     Indication: DIABETES MELLITUS
     Dosage: 15 MG (15 MG, 1 D), ORAL
     Route: 048
     Dates: start: 20041122, end: 20041202
  2. INSULIN [Concomitant]

REACTIONS (5)
  - BLOOD PRESSURE DECREASED [None]
  - COMA [None]
  - DEHYDRATION [None]
  - DELIRIUM [None]
  - SHOCK [None]
